FAERS Safety Report 9986513 (Version 1)
Quarter: 2014Q1

REPORT INFORMATION
  Report Type: Report from Study
  Country: US (occurrence: US)
  Receive Date: 20140307
  Receipt Date: 20140307
  Transmission Date: 20141002
  Serious: No
  Sender: FDA-Public Use
  Company Number: US-ABBVIE-13P-163-1082139-00

PATIENT
  Age: 68 Year
  Sex: Female

DRUGS (5)
  1. HUMIRA [Suspect]
     Indication: PSORIATIC ARTHROPATHY
     Route: 058
     Dates: start: 2010, end: 2012
  2. PAXIL [Concomitant]
     Indication: ANXIETY
  3. UNKNOWN DIURETIC [Concomitant]
     Indication: HYPERTENSION
  4. UNKNOWN MEDICATION [Concomitant]
     Indication: HYPERTENSION
  5. REMICADE [Concomitant]
     Indication: ANXIETY

REACTIONS (1)
  - Drug ineffective [Recovered/Resolved]
